FAERS Safety Report 7522201-6 (Version None)
Quarter: 2011Q2

REPORT INFORMATION
  Report Type: 
  Country: None (occurrence: None)
  Receive Date: 20110531
  Receipt Date: 20110517
  Transmission Date: 20111010
  Serious: Yes (Other)
  Sender: FDA-Public Use
  Company Number: PHFR2011GB02422

PATIENT
  Sex: Male

DRUGS (2)
  1. CLOZARIL [Suspect]
     Indication: SCHIZOPHRENIA
     Dosage: 550 MG, UNK
     Route: 048
     Dates: start: 20110211, end: 20110415
  2. CLOZARIL [Suspect]
     Dosage: 400 MG
     Dates: end: 20110415

REACTIONS (7)
  - SINUS TACHYCARDIA [None]
  - BUNDLE BRANCH BLOCK LEFT [None]
  - INTENTIONAL SELF-INJURY [None]
  - CHEST PAIN [None]
  - MALAISE [None]
  - HEART RATE INCREASED [None]
  - PALPITATIONS [None]
